FAERS Safety Report 6537959-2 (Version None)
Quarter: 2010Q1

REPORT INFORMATION
  Report Type: 
  Country: None (occurrence: None)
  Receive Date: 20100112
  Receipt Date: 20100112
  Transmission Date: 20100710
  Serious: Yes (Disabling)
  Sender: FDA-Public Use
  Company Number: None

PATIENT
  Age: 69 Year
  Sex: Female
  Weight: 102.0593 kg

DRUGS (18)
  1. SEROQUEL [Suspect]
     Indication: INSOMNIA
     Dosage: 50 MG - 3 TAB 100 MG 30 TAB ORAL 300 MG 7 TAB 400 MG 30 TAB ORAL
     Route: 048
     Dates: start: 20090109
  2. SEROQUEL [Suspect]
     Indication: INSOMNIA
     Dosage: 50 MG - 3 TAB 100 MG 30 TAB ORAL 300 MG 7 TAB 400 MG 30 TAB ORAL
     Route: 048
     Dates: start: 20090114
  3. SEROQUEL [Suspect]
     Indication: INSOMNIA
     Dosage: 50 MG - 3 TAB 100 MG 30 TAB ORAL 300 MG 7 TAB 400 MG 30 TAB ORAL
     Route: 048
     Dates: start: 20090208
  4. SEROQUEL [Suspect]
  5. IPRATROPIUM [Concomitant]
  6. NASONEX [Concomitant]
  7. SINGULAIR [Concomitant]
  8. LEVOTHYROXINE SODIUM [Concomitant]
  9. RANITIDINE [Concomitant]
  10. OMEPRAZOLE [Concomitant]
  11. DICYCLOMINE [Concomitant]
  12. TRAMADOL [Concomitant]
  13. IBUPROFEN [Concomitant]
  14. NAPROXEN [Concomitant]
  15. PRAVASTATIN [Concomitant]
  16. METFORMIN [Concomitant]
  17. PREDNISONE [Concomitant]
  18. ZYPREXA [Concomitant]

REACTIONS (1)
  - MYALGIA [None]
